FAERS Safety Report 14223422 (Version 3)
Quarter: 2018Q1

REPORT INFORMATION
  Report Type: Report from Study
  Country: CO (occurrence: CO)
  Receive Date: 20171124
  Receipt Date: 20180115
  Transmission Date: 20180508
  Serious: Yes (Death, Hospitalization, Disabling)
  Sender: FDA-Public Use
  Company Number: PHHY2017CO150868

PATIENT
  Age: 69 Year
  Sex: Female
  Weight: 38 kg

DRUGS (3)
  1. PREGABALIN. [Suspect]
     Active Substance: PREGABALIN
     Indication: PAIN
     Route: 065
  2. AFINITOR [Suspect]
     Active Substance: EVEROLIMUS
     Indication: NEUROENDOCRINE TUMOUR
     Dosage: 10 MG, QD
     Route: 048
     Dates: start: 20170504, end: 20170926
  3. SANDOSTATIN LAR DEPOT [Suspect]
     Active Substance: OCTREOTIDE ACETATE
     Indication: NEUROENDOCRINE TUMOUR
     Dosage: 30 MG, QMO
     Route: 030
     Dates: start: 20170617, end: 20170926

REACTIONS (16)
  - Swelling [Unknown]
  - Oedema [Unknown]
  - Faecaloma [Unknown]
  - Loss of consciousness [Unknown]
  - Blood potassium decreased [Unknown]
  - General physical health deterioration [Unknown]
  - Abdominal pain upper [Unknown]
  - Constipation [Unknown]
  - Weight increased [Unknown]
  - Oedema peripheral [Unknown]
  - Blood glucose decreased [Unknown]
  - Pain [Unknown]
  - Cardiac arrest [Fatal]
  - Respiratory arrest [Fatal]
  - Gait inability [Unknown]
  - Asthenia [Unknown]

NARRATIVE: CASE EVENT DATE: 20171122
